FAERS Safety Report 8106042-7 (Version None)
Quarter: 2012Q1

REPORT INFORMATION
  Report Type: 
  Country: None (occurrence: None)
  Receive Date: 20120202
  Receipt Date: 20120125
  Transmission Date: 20120608
  Serious: No
  Sender: FDA-Public Use
  Company Number: US-BIOGENIDEC-2012BI003329

PATIENT
  Sex: Female

DRUGS (1)
  1. AVONEX [Suspect]
     Indication: MULTIPLE SCLEROSIS
     Route: 030
     Dates: start: 20101025

REACTIONS (5)
  - MULTIPLE SCLEROSIS [None]
  - ENAMEL ANOMALY [None]
  - AGRAPHIA [None]
  - MEMORY IMPAIRMENT [None]
  - NEURALGIA [None]
